FAERS Safety Report 5287547-3 (Version None)
Quarter: 2007Q1

REPORT INFORMATION
  Report Type: 
  Country: None (occurrence: None)
  Receive Date: 20070126
  Receipt Date: 20061031
  Transmission Date: 20070707
  Serious: No
  Sender: FDA-Public Use
  Company Number: 2006CT000843

PATIENT
  Age: 68 Year
  Sex: Female
  Weight: 106.6 kg

DRUGS (23)
  1. VENTAVIS [Suspect]
     Indication: PULMONARY HYPERTENSION
     Dosage: 5 UG;6XD;INH
     Route: 055
     Dates: start: 20060101
  2. VENTAVIS [Suspect]
     Indication: PULMONARY HYPERTENSION
     Dosage: 5 UG;4-5X/DAY;INH
     Route: 055
  3. NEXIUM [Concomitant]
  4. ALLOPURINOL [Concomitant]
  5. LORATADINE [Concomitant]
  6. MUCINEX [Concomitant]
  7. CENTRUM [Concomitant]
  8. CALTRATE [Concomitant]
  9. SILDENAFIL CITRATE [Concomitant]
  10. ALDACTONE [Concomitant]
  11. KLOR-CON [Concomitant]
  12. ESTROGENS CONJUGATED [Concomitant]
  13. GLUCOSAMINE HYDROCHLORIDE/CHONDROITIN SULFATE [Concomitant]
  14. VITAMIN D [Concomitant]
  15. MAGNESIUM [Concomitant]
  16. ACTIGALL [Concomitant]
  17. SYNTHROID [Concomitant]
  18. BUMETANIDE [Concomitant]
  19. WARFARIN SODIUM [Concomitant]
  20. DIGITEK [Concomitant]
  21. QUININE SULFATE [Concomitant]
  22. FOLIC ACID [Concomitant]
  23. ZETIA [Concomitant]

REACTIONS (2)
  - CANDIDIASIS [None]
  - DIZZINESS [None]
